FAERS Safety Report 14481846 (Version 3)
Quarter: 2018Q1

REPORT INFORMATION
  Report Type: Spontaneous
  Country: US (occurrence: US)
  Receive Date: 20180202
  Receipt Date: 20180321
  Transmission Date: 20180509
  Serious: Yes (Hospitalization, Other)
  Sender: FDA-Public Use
  Company Number: US-PFIZER INC-2018040857

PATIENT
  Age: 47 Year
  Sex: Male
  Weight: 212.7 kg

DRUGS (3)
  1. PERCOCET [Concomitant]
     Active Substance: ACETAMINOPHEN\OXYCODONE HYDROCHLORIDE
     Indication: ARTHRITIS
     Dosage: 325MG/5MG BY MOUTH THREE TIMES A DAY AS NEEDED
     Route: 048
     Dates: start: 2001
  2. ATROPINE SULFATE/DIPHENOXYLATE HYDROCHLORIDE [Suspect]
     Active Substance: ATROPINE SULFATE\DIPHENOXYLATE HYDROCHLORIDE
     Indication: DIARRHOEA
     Dosage: UNK
  3. ADVIL [Concomitant]
     Active Substance: IBUPROFEN
     Indication: ARTHRITIS
     Dosage: UNK, AS NEEDED (2-3 PILLS BY MOUTH 2-3 TIMES DAY)
     Route: 048
     Dates: start: 2001

REACTIONS (9)
  - Movement disorder [Unknown]
  - Lung disorder [Unknown]
  - Coma [Recovered/Resolved with Sequelae]
  - Weight increased [Unknown]
  - Amnesia [Not Recovered/Not Resolved]
  - Appendicitis perforated [Unknown]
  - Renal disorder [Unknown]
  - Gait inability [Recovering/Resolving]
  - Cardiac failure congestive [Unknown]

NARRATIVE: CASE EVENT DATE: 2001
